FAERS Safety Report 8543129-9 (Version None)
Quarter: 2012Q3

REPORT INFORMATION
  Report Type: 
  Country: None (occurrence: None)
  Receive Date: 20120727
  Receipt Date: 20120213
  Transmission Date: 20120928
  Serious: No
  Sender: FDA-Public Use
  Company Number: US-MYLANLABS-2012S1003413

PATIENT
  Sex: Male

DRUGS (3)
  1. THYROID TAB [Concomitant]
     Indication: HYPOTHYROIDISM
  2. VITAMIN TAB [Concomitant]
  3. LEVOTHYROXINE SODIUM [Suspect]
     Indication: HYPOTHYROIDISM
     Route: 048
     Dates: start: 20120131, end: 20120208

REACTIONS (3)
  - FEELING ABNORMAL [None]
  - NAUSEA [None]
  - ABDOMINAL PAIN [None]
